FAERS Safety Report 4817750-5 (Version None)
Quarter: 2005Q3

REPORT INFORMATION
  Report Type: 
  Country: None (occurrence: None)
  Receive Date: 20050929
  Receipt Date: 20050715
  Transmission Date: 20060218
  Serious: No
  Sender: FDA-Public Use
  Company Number: 05P-163-0305923-00

PATIENT
  Age: 81 Year
  Sex: Female
  Weight: 66.6788 kg

DRUGS (6)
  1. HUMIRA [Suspect]
     Indication: RHEUMATOID ARTHRITIS
     Dosage: 40 MG, 1 IN 2 WK, SUBCUTANEOUS
     Route: 058
     Dates: start: 20050401
  2. IRBESARTAN [Concomitant]
  3. HYDROXYCHLOROQUINE PHOSPHATE [Concomitant]
  4. WARFARIN SODIUM [Concomitant]
  5. CELECOXIB [Concomitant]
  6. TOPOROL [Concomitant]

REACTIONS (2)
  - PAIN IN EXTREMITY [None]
  - SHOULDER PAIN [None]
